FAERS Safety Report 9341756 (Version 1)
Quarter: 2013Q2

REPORT INFORMATION
  Report Type: Report from Study
  Country: US (occurrence: US)
  Receive Date: 20130611
  Receipt Date: 20130611
  Transmission Date: 20140414
  Serious: Yes (Hospitalization)
  Sender: FDA-Public Use
  Company Number: US-ROCHE-1232539

PATIENT
  Age: 43 Year
  Sex: Female

DRUGS (2)
  1. RITUXAN [Suspect]
     Indication: RHEUMATOID ARTHRITIS
     Dosage: Q14DX2X6MO
     Route: 042
     Dates: start: 20121231, end: 201301
  2. ENBREL [Concomitant]
     Indication: RHEUMATOID ARTHRITIS
     Dosage: STARTED PRIOR TO RITUXAN AND STOPPED BEFORE RITUXAN
     Route: 065

REACTIONS (5)
  - Pain [Recovered/Resolved]
  - Dizziness [Recovered/Resolved]
  - Vomiting [Recovered/Resolved]
  - Stomatitis [Unknown]
  - Headache [Recovered/Resolved]
